FAERS Safety Report 15431130 (Version 21)
Quarter: 2019Q4

REPORT INFORMATION
  Report Type: Report from Study
  Country: DE (occurrence: DE)
  Receive Date: 20180926
  Receipt Date: 20191202
  Transmission Date: 20200122
  Serious: Yes (Hospitalization, Other)
  Sender: FDA-Public Use
  Company Number: DE-SHIRE-DE201835047

PATIENT

DRUGS (10)
  1. TEDUGLUTIDE [Suspect]
     Active Substance: TEDUGLUTIDE
     Dosage: 0.24 ML, EVERY 2 DAYS/EVERY OTHER DAY
     Route: 058
     Dates: start: 20180915, end: 20181007
  2. TEDUGLUTIDE [Suspect]
     Active Substance: TEDUGLUTIDE
     Dosage: 1 MILLIGRAM, 1X/DAY:QD
     Route: 058
     Dates: start: 20190203, end: 20190307
  3. TEDUGLUTIDE [Suspect]
     Active Substance: TEDUGLUTIDE
     Dosage: 1 MILLIGRAM, 1X/DAY:QD
     Route: 058
     Dates: start: 20190506, end: 20190624
  4. TEDUGLUTIDE [Suspect]
     Active Substance: TEDUGLUTIDE
     Dosage: 1 MILLIGRAM, QOD
     Route: 058
     Dates: start: 20190625, end: 20190710
  5. TEDUGLUTIDE [Suspect]
     Active Substance: TEDUGLUTIDE
     Indication: SHORT-BOWEL SYNDROME
     Dosage: 0.12 ML, 1X/DAY:QD
     Route: 058
     Dates: start: 20101009, end: 20181028
  6. TEDUGLUTIDE [Suspect]
     Active Substance: TEDUGLUTIDE
     Dosage: 1 MILLIGRAM, 1X/DAY:QD
     Route: 058
     Dates: start: 20190311
  7. PARACETAMOL [Concomitant]
     Active Substance: ACETAMINOPHEN
     Indication: PAIN
  8. TEDUGLUTIDE [Suspect]
     Active Substance: TEDUGLUTIDE
     Dosage: 0.24 ML, 1X/DAY:QD
     Route: 058
     Dates: start: 20180104
  9. TEDUGLUTIDE [Suspect]
     Active Substance: TEDUGLUTIDE
     Dosage: 0.25 MILLIGRAM, 1X/DAY:QD
     Route: 058
     Dates: start: 20190420, end: 20190505
  10. TEDUGLUTIDE [Suspect]
     Active Substance: TEDUGLUTIDE
     Dosage: 1 MILLIGRAM, QOD
     Route: 058
     Dates: start: 20190711

REACTIONS (15)
  - Tension [Unknown]
  - Lipase decreased [Unknown]
  - Abdominal fat apron [Unknown]
  - Paresis [Unknown]
  - Dyspnoea [Unknown]
  - Eructation [Recovering/Resolving]
  - Mental disorder [Unknown]
  - Intervertebral disc protrusion [Unknown]
  - Pancreatitis acute [Recovering/Resolving]
  - Disturbance in attention [Not Recovered/Not Resolved]
  - Musculoskeletal pain [Recovering/Resolving]
  - Hypertension [Recovering/Resolving]
  - Blood triglycerides increased [Recovering/Resolving]
  - Feeling cold [Not Recovered/Not Resolved]
  - White blood cell count decreased [Unknown]

NARRATIVE: CASE EVENT DATE: 20180903
